FAERS Safety Report 24005679 (Version 1)
Quarter: 2024Q2

REPORT INFORMATION
  Report Type: Spontaneous
  Country: US (occurrence: None)
  Receive Date: 20240622
  Receipt Date: 20240622
  Transmission Date: 20240716
  Serious: Yes (Life-Threatening, Hospitalization, Other)
  Sender: FDA-Public Use
  Company Number: None

PATIENT
  Age: 29 Year
  Sex: Female

DRUGS (7)
  1. LAMICTAL [Suspect]
     Active Substance: LAMOTRIGINE
     Indication: Affective disorder
     Dates: start: 20210601, end: 20210626
  2. LAMICTAL [Suspect]
     Active Substance: LAMOTRIGINE
     Indication: Depression
  3. LAMICTAL [Suspect]
     Active Substance: LAMOTRIGINE
     Indication: Bipolar disorder
  4. VORTIOXETINE [Concomitant]
     Active Substance: VORTIOXETINE
  5. BACTRIM [Concomitant]
     Active Substance: SULFAMETHOXAZOLE\TRIMETHOPRIM
  6. ATARAX [Concomitant]
     Active Substance: HYDROXYZINE HYDROCHLORIDE
  7. WOMENS VITAMINS [Concomitant]

REACTIONS (7)
  - Oral mucosal blistering [None]
  - Paraesthesia oral [None]
  - Stevens-Johnson syndrome [None]
  - Oropharyngeal pain [None]
  - Abdominal pain upper [None]
  - Eye irritation [None]
  - Nail disorder [None]

NARRATIVE: CASE EVENT DATE: 20210624
